FAERS Safety Report 8410786 (Version 2)
Quarter: 2013Q1

REPORT INFORMATION
  Report Type: Spontaneous
  Country: FR (occurrence: FR)
  Receive Date: 20120217
  Receipt Date: 20130115
  Transmission Date: 20140127
  Serious: Yes (Hospitalization, Other)
  Sender: FDA-Public Use
  Company Number: FR-SHIRE-SPV1-2012-00112

PATIENT
  Age: 58 Year
  Sex: Male

DRUGS (11)
  1. XAGRID [Suspect]
     Indication: ESSENTIAL THROMBOCYTHAEMIA
     Dosage: 2.5 MG, (5 - 0.5 MG CAPSULES) 1X/DAY:QD
     Route: 048
     Dates: start: 20110627, end: 20111208
  2. XAGRID [Suspect]
     Dosage: 1.5 MG, (3 - 0.5 MG CAPSULES) 1X/DAY:QD
     Route: 048
     Dates: start: 20110111
  3. XAGRID [Suspect]
     Dosage: 0.5 MG, 2X/DAY:BID
     Route: 048
     Dates: start: 20101012
  4. METFORMINE [Concomitant]
     Indication: TYPE 2 DIABETES MELLITUS
     Dosage: 1 DF, 1X/DAY:QD
     Route: 065
  5. PLAVIX [Concomitant]
     Indication: PERIPHERAL ARTERIAL OCCLUSIVE DISEASE
     Dosage: UNK, UNKNOWN
     Route: 065
  6. RAMIPRIL [Concomitant]
     Indication: PERIPHERAL ARTERIAL OCCLUSIVE DISEASE
     Dosage: 2.5 MG, (1 CAPSULE) 1X/DAY:QD
     Route: 065
  7. SPIRIVA [Concomitant]
     Indication: CHRONIC OBSTRUCTIVE PULMONARY DISEASE
     Dosage: UNK, UNKNOWN
     Route: 065
  8. SYMBICORT [Concomitant]
     Indication: CHRONIC OBSTRUCTIVE PULMONARY DISEASE
     Dosage: UNK, UNKNOWN
     Route: 065
  9. HYDREA [Concomitant]
     Indication: ESSENTIAL THROMBOCYTHAEMIA
     Dosage: 3 DF, 1X/DAY:QD
     Route: 065
     Dates: start: 20111208
  10. HYDREA [Concomitant]
     Dosage: 2 DF, UNKNOWN
     Route: 065
  11. HYDREA [Concomitant]
     Dosage: 500 MG, UNKNOWN
     Route: 065
     Dates: start: 20100216, end: 20110801

REACTIONS (1)
  - Acute coronary syndrome [Recovered/Resolved with Sequelae]
